APPROVED DRUG PRODUCT: DOXYCYCLINE HYCLATE
Active Ingredient: DOXYCYCLINE HYCLATE
Strength: EQ 100MG BASE
Dosage Form/Route: TABLET;ORAL
Application: A062593 | Product #001
Applicant: WARNER CHILCOTT DIV WARNER LAMBERT CO
Approved: Aug 28, 1985 | RLD: No | RS: No | Type: DISCN